FAERS Safety Report 8395345-7 (Version None)
Quarter: 2012Q2

REPORT INFORMATION
  Report Type: 
  Country: None (occurrence: None)
  Receive Date: 20120530
  Receipt Date: 20120525
  Transmission Date: 20120825
  Serious: Yes (Death, Life-Threatening, Hospitalization)
  Sender: FDA-Public Use
  Company Number: US-PFIZER INC-2012119431

PATIENT
  Sex: Male
  Weight: 41.7 kg

DRUGS (5)
  1. OXYCODONE [Concomitant]
     Indication: TUMOUR PAIN
     Dosage: UNK
     Dates: start: 20120201
  2. CARBOPLATIN [Suspect]
     Indication: HEAD AND NECK CANCER
     Dosage: AUC 5, ON DAY ONE
     Route: 042
     Dates: start: 20120319, end: 20120416
  3. BLINDED THERAPY [Suspect]
     Indication: HEAD AND NECK CANCER
     Dosage: 400 MG/M2, ON DAY ONE OF CYCLE ONE ONLY
     Route: 042
     Dates: start: 20120307, end: 20120307
  4. FLUOROURACIL [Suspect]
     Indication: HEAD AND NECK CANCER
     Dosage: 1000 MG/M2 ON DAYS ONE TO FOUR
     Route: 042
     Dates: start: 20120319, end: 20120420
  5. OXYCONTIN [Concomitant]
     Indication: TUMOUR PAIN
     Dosage: UNK
     Dates: start: 20120201

REACTIONS (8)
  - SEPSIS [None]
  - WHITE BLOOD CELL COUNT DECREASED [None]
  - NEUTROPHIL COUNT DECREASED [None]
  - FALL [None]
  - PLATELET COUNT DECREASED [None]
  - TRACHEAL OBSTRUCTION [None]
  - HYPOKALAEMIA [None]
  - HYPOALBUMINAEMIA [None]
